FAERS Safety Report 6104642-7 (Version None)
Quarter: 2009Q1

REPORT INFORMATION
  Report Type: 
  Country: None (occurrence: None)
  Receive Date: 20090303
  Receipt Date: 20090203
  Transmission Date: 20090719
  Serious: Yes (Hospitalization)
  Sender: FDA-Public Use
  Company Number: 20096290

PATIENT
  Age: 2 Year
  Sex: Male

DRUGS (1)
  1. LIORESAL [Suspect]
     Indication: MUSCLE SPASTICITY
     Dosage: 150 MCG, DAILY, INTRATHECAL
     Route: 037

REACTIONS (7)
  - BRADYPNOEA [None]
  - CENTRAL NERVOUS SYSTEM INFECTION [None]
  - CSF PRESSURE INCREASED [None]
  - INTRACRANIAL HYPOTENSION [None]
  - LETHARGY [None]
  - POST PROCEDURAL COMPLICATION [None]
  - STAPHYLOCOCCAL INFECTION [None]
